FAERS Safety Report 18473099 (Version 1)
Quarter: 2020Q4

REPORT INFORMATION
  Report Type: Spontaneous
  Country: US (occurrence: US)
  Receive Date: 20201106
  Receipt Date: 20201106
  Transmission Date: 20210114
  Serious: No
  Sender: FDA-Public Use
  Company Number: US-ELI_LILLY_AND_COMPANY-US202010007067

PATIENT
  Age: 71 Year

DRUGS (2)
  1. EMGALITY [Suspect]
     Active Substance: GALCANEZUMAB-GNLM
     Indication: MIGRAINE PROPHYLAXIS
     Dosage: 120 MG, UNKNOWN
     Route: 065
     Dates: start: 20200921
  2. EMGALITY [Suspect]
     Active Substance: GALCANEZUMAB-GNLM
     Dosage: 120 MG, UNKNOWN
     Route: 065
     Dates: start: 20201016

REACTIONS (4)
  - Underdose [Not Recovered/Not Resolved]
  - Inappropriate schedule of product administration [Unknown]
  - Malaise [Not Recovered/Not Resolved]
  - Migraine [Recovered/Resolved]

NARRATIVE: CASE EVENT DATE: 20200921
